FAERS Safety Report 9074027 (Version 1)
Quarter: 2013Q1

REPORT INFORMATION
  Report Type: Report from Study
  Country: US (occurrence: US)
  Receive Date: 20130128
  Receipt Date: 20130128
  Transmission Date: 20140127
  Serious: No
  Sender: FDA-Public Use
  Company Number: US-ABBOTT-12P-163-0919113-00

PATIENT
  Sex: Female
  Weight: 108.96 kg

DRUGS (6)
  1. HUMIRA 40 MG/0.8 ML PEN [Suspect]
     Indication: RHEUMATOID ARTHRITIS
     Dates: start: 201202
  2. HUMIRA 40 MG/0.8 ML PEN [Suspect]
  3. METFORMIN [Concomitant]
     Indication: DIABETES MELLITUS
  4. VITAMIN C [Concomitant]
     Indication: PRODUCT USED FOR UNKNOWN INDICATION
  5. LEFLUNOMIDE [Concomitant]
     Indication: RHEUMATOID ARTHRITIS
  6. HCTZ [Concomitant]
     Indication: HYPERTENSION

REACTIONS (2)
  - Furuncle [Recovered/Resolved]
  - Musculoskeletal stiffness [Recovered/Resolved]
